FAERS Safety Report 10187708 (Version 1)
Quarter: 2014Q2

REPORT INFORMATION
  Report Type: Spontaneous
  Country: US (occurrence: US)
  Receive Date: 20140522
  Receipt Date: 20140522
  Transmission Date: 20141212
  Serious: No
  Sender: FDA-Public Use
  Company Number: US-SANOFI-AVENTIS-2013SA089061

PATIENT
  Age: 56 Year
  Sex: Female

DRUGS (1)
  1. LANTUS [Suspect]
     Indication: TYPE 2 DIABETES MELLITUS
     Route: 051

REACTIONS (4)
  - Adverse event [Unknown]
  - Pruritus [Unknown]
  - Dyspnoea [Unknown]
  - Unevaluable event [Recovered/Resolved]
